FAERS Safety Report 7000022-0 (Version None)
Quarter: 2010Q3

REPORT INFORMATION
  Report Type: 
  Country: None (occurrence: None)
  Receive Date: 20100920
  Receipt Date: 20100610
  Transmission Date: 20110219
  Serious: No
  Sender: FDA-Public Use
  Company Number: US-ASTRAZENECA-2010SE27512

PATIENT
  Age: 52 Year
  Sex: Male

DRUGS (1)
  1. SEROQUEL XR [Suspect]
     Indication: INSOMNIA
     Route: 048

REACTIONS (2)
  - ABNORMAL DREAMS [None]
  - INCORRECT DOSE ADMINISTERED [None]
